FAERS Safety Report 7954184-9 (Version None)
Quarter: 2011Q4

REPORT INFORMATION
  Report Type: 
  Country: None (occurrence: None)
  Receive Date: 20111202
  Receipt Date: 20111128
  Transmission Date: 20120403
  Serious: Yes (Death, Hospitalization)
  Sender: FDA-Public Use
  Company Number: DE-ROCHE-681538

PATIENT
  Sex: Female
  Weight: 52 kg

DRUGS (4)
  1. FLUOROURACIL [Suspect]
     Indication: GASTRIC CANCER
     Route: 042
     Dates: start: 20090310, end: 20090827
  2. CISPLATIN [Suspect]
     Indication: GASTRIC CANCER
     Route: 042
     Dates: start: 20090310, end: 20090827
  3. FOLIC ACID [Suspect]
     Indication: GASTRIC CANCER
     Route: 042
     Dates: start: 20090310, end: 20090827
  4. XELODA [Suspect]
     Indication: GASTRIC CANCER
     Route: 048
     Dates: start: 20090201, end: 20090317

REACTIONS (3)
  - DEATH [None]
  - NAUSEA [None]
  - VOMITING [None]
